FAERS Safety Report 7870470-5 (Version None)
Quarter: 2011Q4

REPORT INFORMATION
  Report Type: 
  Country: None (occurrence: None)
  Receive Date: 20111029
  Receipt Date: 20110216
  Transmission Date: 20120403
  Serious: No
  Sender: FDA-Public Use
  Company Number: US-AMGEN-USASP2011009316

PATIENT
  Age: 32 Year
  Sex: Female

DRUGS (2)
  1. METHOTREXATE [Concomitant]
     Dosage: 5 MG, QWK
     Dates: start: 20090101
  2. ENBREL [Suspect]
     Indication: RHEUMATOID ARTHRITIS
     Dosage: 50 MG, QWK
     Dates: start: 20091101

REACTIONS (3)
  - DRUG INEFFECTIVE [None]
  - RHEUMATOID ARTHRITIS [None]
  - RESPIRATORY TRACT INFECTION [None]
